FAERS Safety Report 6945088-9 (Version None)
Quarter: 2010Q3

REPORT INFORMATION
  Report Type: 
  Country: None (occurrence: None)
  Receive Date: 20100827
  Receipt Date: 20100817
  Transmission Date: 20110219
  Serious: Yes (Hospitalization, Other)
  Sender: FDA-Public Use
  Company Number: BR-ABBOTT-10P-020-0645006-00

PATIENT
  Sex: Female
  Weight: 64 kg

DRUGS (13)
  1. HUMIRA [Suspect]
     Indication: RHEUMATOID ARTHRITIS
     Route: 058
  2. HYDROCHLOROTHIAZIDE [Concomitant]
     Indication: HYPERTENSION
     Route: 048
  3. POTASSIUM LOSARTAN [Concomitant]
     Indication: HYPERTENSION
     Route: 048
  4. SULFASALAZINE [Concomitant]
     Indication: RHEUMATOID ARTHRITIS
     Route: 048
  5. REUQUINOL [Concomitant]
     Indication: RHEUMATOID ARTHRITIS
     Route: 048
  6. BUSSOMIDA [Concomitant]
     Indication: LUNG DISORDER
     Route: 048
  7. FORMOCAPS [Concomitant]
     Indication: LUNG DISORDER
     Route: 055
  8. ALENIA [Concomitant]
     Indication: LUNG DISORDER
     Route: 055
  9. COMBINED FORM:AMITRIPTYLINE/PREDNISONE/PIROXICAM/FOLIC ACID/RANITIDINE [Concomitant]
     Indication: RHEUMATOID ARTHRITIS
     Dosage: 15MG/4MG/10MG/0.5MG/150MG - COMBINED FORMULA
  10. ENALAPRIL [Concomitant]
     Indication: HYPERTENSION
     Route: 048
  11. CEPHALEXIN [Concomitant]
     Indication: ANTIINFLAMMATORY THERAPY
     Route: 048
  12. NIMESULIDE [Concomitant]
     Indication: ANTIINFLAMMATORY THERAPY
     Route: 048
  13. NOVALGINA [Concomitant]
     Indication: PAIN
     Route: 048

REACTIONS (10)
  - BLOOD PRESSURE INCREASED [None]
  - BREAST CANCER [None]
  - DEPRESSION [None]
  - DYSPNOEA [None]
  - HAEMOPTYSIS [None]
  - INJECTION SITE PAIN [None]
  - LUNG INFECTION [None]
  - POST PROCEDURAL HAEMORRHAGE [None]
  - PYREXIA [None]
  - SECRETION DISCHARGE [None]
